FAERS Safety Report 8479796 (Version 3)
Quarter: 2013Q2

REPORT INFORMATION
  Report Type: Report from Study
  Country: DE (occurrence: DE)
  Receive Date: 20120328
  Receipt Date: 20130530
  Transmission Date: 20140414
  Serious: Yes (Hospitalization)
  Sender: FDA-Public Use
  Company Number: DE-INCYTE CORPORATION-2012IN000439

PATIENT
  Age: 69 Year
  Sex: Female
  Weight: 60 kg

DRUGS (8)
  1. INC424 [Suspect]
     Indication: MYELOFIBROSIS
     Dosage: 5 MG, BID
     Route: 048
     Dates: start: 20111205, end: 20120312
  2. DICLOFENAC [Concomitant]
     Dosage: UNK
     Dates: start: 20111118
  3. TILIDIN [Concomitant]
     Dosage: UNK
     Dates: start: 20111118
  4. NOVALGIN [Concomitant]
     Dosage: UNK
     Dates: start: 20080304
  5. LAXOBERAL [Concomitant]
     Dosage: UNK
     Dates: start: 20111201
  6. TRAMADOL [Concomitant]
     Dosage: UNK
     Dates: start: 20111118
  7. ROCALTROL [Concomitant]
     Dosage: UNK
     Dates: start: 20080304
  8. PANTOPRAZOLE [Concomitant]
     Dosage: UNK
     Dates: start: 20111118

REACTIONS (1)
  - Renal infarct [Recovered/Resolved]
